FAERS Safety Report 5826707-7 (Version None)
Quarter: 2008Q3

REPORT INFORMATION
  Report Type: 
  Country: None (occurrence: None)
  Receive Date: 20080730
  Receipt Date: 20080725
  Transmission Date: 20090109
  Serious: Yes (Death)
  Sender: FDA-Public Use
  Company Number: PHHY2008DE11049

PATIENT
  Sex: Female
  Weight: 116 kg

DRUGS (4)
  1. CLOZAPINE [Suspect]
     Indication: SCHIZOPHRENIA
     Dosage: UNK
     Route: 048
     Dates: start: 20010101
  2. TIAPRIDE [Suspect]
     Dosage: 300 MG/DAY
     Route: 048
     Dates: start: 20070705, end: 20070708
  3. QUILONIUM-R [Concomitant]
     Dosage: 1125 MG / DAY
     Route: 048
     Dates: start: 20050101
  4. LEVOTHYROXINE SODIUM [Concomitant]
     Indication: HYPOTHYROIDISM
     Dosage: 75 MCG/DAY
     Route: 048
     Dates: start: 20070201

REACTIONS (14)
  - CARDIAC ARREST [None]
  - CARDIAC DISORDER [None]
  - CYANOSIS [None]
  - DIZZINESS [None]
  - ECHOCARDIOGRAM [None]
  - ELECTROCARDIOGRAM ABNORMAL [None]
  - HEPATIC STEATOSIS [None]
  - LEFT VENTRICULAR HYPERTROPHY [None]
  - LOSS OF CONSCIOUSNESS [None]
  - OBESITY [None]
  - PULMONARY OEDEMA [None]
  - PULSE ABSENT [None]
  - SYNCOPE [None]
  - TACHYCARDIA [None]
